FAERS Safety Report 24200338 (Version 1)
Quarter: 2024Q3

REPORT INFORMATION
  Report Type: Spontaneous
  Country: US (occurrence: None)
  Receive Date: 20240809
  Receipt Date: 20240809
  Transmission Date: 20241017
  Serious: No
  Sender: Public
  Company Number: None

PATIENT
  Age: 32 Year
  Sex: Female
  Weight: 59.4 kg

DRUGS (12)
  1. PAXLOVID [Suspect]
     Active Substance: NIRMATRELVIR\RITONAVIR
     Indication: COVID-19
     Dosage: OTHER QUANTITY : 3 TABLET(S);?FREQUENCY : TWICE A DAY;?
     Route: 048
     Dates: start: 20240728, end: 20240729
  2. METHOCARBAMOL [Suspect]
     Active Substance: METHOCARBAMOL
  3. HERBALS\MITRAGYNINE [Suspect]
     Active Substance: HERBALS\MITRAGYNINE
  4. METOPROLOL [Concomitant]
     Active Substance: METOPROLOL
  5. BUSPIRONE [Concomitant]
     Active Substance: BUSPIRONE HYDROCHLORIDE
  6. BUPROPION [Concomitant]
     Active Substance: BUPROPION
  7. ESTROGENS [Concomitant]
     Active Substance: ESTROGENS
  8. AMITRIPTYLINE [Concomitant]
     Active Substance: AMITRIPTYLINE
  9. TYLENOL [Concomitant]
     Active Substance: ACETAMINOPHEN
  10. IBUPROFEN [Concomitant]
     Active Substance: IBUPROFEN
  11. ZOFRAN [Concomitant]
     Active Substance: ONDANSETRON HYDROCHLORIDE
  12. HERBALS\MITRAGYNINE [Concomitant]
     Active Substance: HERBALS\MITRAGYNINE

REACTIONS (11)
  - Visual impairment [None]
  - Dizziness [None]
  - Crying [None]
  - Feeling abnormal [None]
  - Dyspnoea [None]
  - Fear [None]
  - Headache [None]
  - Head discomfort [None]
  - Abnormal dreams [None]
  - Vulvovaginal pruritus [None]
  - Screaming [None]

NARRATIVE: CASE EVENT DATE: 20240801
